FAERS Safety Report 14190622 (Version 1)
Quarter: 2017Q4

REPORT INFORMATION
  Report Type: Spontaneous
  Country: US (occurrence: US)
  Receive Date: 20171115
  Receipt Date: 20171115
  Transmission Date: 20180321
  Serious: Yes (Hospitalization, Other)
  Sender: FDA-Public Use
  Company Number: US-AMNEAL PHARMACEUTICALS COMPANY GMBH-2017AGH00003

PATIENT
  Age: 84 Year
  Sex: Female
  Weight: 48.5 kg

DRUGS (10)
  1. ACIDOPHILUS [Concomitant]
     Active Substance: LACTOBACILLUS ACIDOPHILUS
  2. CALCIUM [Concomitant]
     Active Substance: CALCIUM
  3. JAKAFI [Suspect]
     Active Substance: RUXOLITINIB
     Indication: POLYCYTHAEMIA VERA
     Dosage: 10 MG, 2X/DAY
     Route: 048
     Dates: start: 20170809, end: 20170827
  4. LEVOTHYROXINE. [Concomitant]
     Active Substance: LEVOTHYROXINE
  5. TYLENOL [Concomitant]
     Active Substance: ACETAMINOPHEN
  6. ZOLOFT [Concomitant]
     Active Substance: SERTRALINE HYDROCHLORIDE
  7. ASPIRIN. [Concomitant]
     Active Substance: ASPIRIN
  8. GLUCOSAMINE CHONDROITIN [Concomitant]
     Active Substance: CHONDROITIN SULFATE (BOVINE)\GLUCOSAMINE HYDROCHLORIDE
  9. FUROSEMIDE. [Suspect]
     Active Substance: FUROSEMIDE
     Indication: PRODUCT USED FOR UNKNOWN INDICATION
     Dosage: UNK
     Route: 065
     Dates: end: 20170901
  10. JAKAFI [Suspect]
     Active Substance: RUXOLITINIB
     Indication: SPLENOMEGALY

REACTIONS (15)
  - Dehydration [Recovered/Resolved]
  - White blood cell count increased [None]
  - Atrial fibrillation [Recovered/Resolved]
  - Abdominal discomfort [Unknown]
  - Hypokalaemia [Recovered/Resolved]
  - Dizziness [Recovered/Resolved]
  - Fatigue [Recovered/Resolved]
  - Platelet count increased [None]
  - Back pain [Unknown]
  - Memory impairment [Unknown]
  - Abnormal dreams [Unknown]
  - Dyspnoea [Recovered/Resolved]
  - Pain in extremity [Unknown]
  - Red blood cell count decreased [None]
  - Acute myeloid leukaemia [None]

NARRATIVE: CASE EVENT DATE: 20170822
